FAERS Safety Report 19459014 (Version 1)
Quarter: 2021Q2

REPORT INFORMATION
  Report Type: Spontaneous
  Country: US (occurrence: US)
  Receive Date: 20210624
  Receipt Date: 20210624
  Transmission Date: 20210717
  Serious: Yes (Other)
  Sender: FDA-Public Use
  Company Number: US-NEUROCRINE BIOSCIENCES INC.-2021NBI03194

PATIENT

DRUGS (2)
  1. LEVODOPA [Concomitant]
     Active Substance: LEVODOPA
     Dosage: UNK
  2. ONGENTYS [Suspect]
     Active Substance: OPICAPONE
     Indication: PRODUCT USED FOR UNKNOWN INDICATION
     Dosage: 50 MILLIGRAM, QHS
     Route: 065

REACTIONS (1)
  - Hallucination [Unknown]
